FAERS Safety Report 6994411-8 (Version None)
Quarter: 2010Q3

REPORT INFORMATION
  Report Type: 
  Country: None (occurrence: None)
  Receive Date: 20100917
  Receipt Date: 20100904
  Transmission Date: 20110219
  Serious: Yes (Other)
  Sender: FDA-Public Use
  Company Number: RO-JNJFOC-20100904676

PATIENT
  Age: 33 Year
  Sex: Female
  Weight: 53 kg

DRUGS (2)
  1. ORUNGAL [Suspect]
     Indication: ONYCHOMYCOSIS
     Route: 065
  2. ORUNGAL [Suspect]
     Route: 065

REACTIONS (5)
  - ABDOMINAL PAIN [None]
  - ANAEMIA [None]
  - FATIGUE [None]
  - MENSTRUATION DELAYED [None]
  - PARAESTHESIA [None]
